FAERS Safety Report 6070277-8 (Version None)
Quarter: 2009Q1

REPORT INFORMATION
  Report Type: 
  Country: None (occurrence: None)
  Receive Date: 20090203
  Receipt Date: 20090112
  Transmission Date: 20090719
  Serious: Yes (Death)
  Sender: FDA-Public Use
  Company Number: 2009S1000564

PATIENT
  Age: 38 Year
  Sex: Male

DRUGS (4)
  1. CLOZAPINE [Suspect]
     Indication: SCHIZOPHRENIA
     Dosage: 900 MG
  2. ZIPRASIDONE (CON.) [Concomitant]
  3. VALPROIC ACID (CON.) [Concomitant]
  4. DIAZEPAM (CON.) [Concomitant]

REACTIONS (5)
  - ASPIRATION [None]
  - FAECALOMA [None]
  - INTESTINAL OBSTRUCTION [None]
  - LOSS OF CONSCIOUSNESS [None]
  - PULMONARY OEDEMA [None]
